FAERS Safety Report 14320141 (Version 1)
Quarter: 2017Q4

REPORT INFORMATION
  Report Type: Spontaneous
  Country: US (occurrence: US)
  Receive Date: 20171222
  Receipt Date: 20171222
  Transmission Date: 20180321
  Serious: No
  Sender: FDA-Public Use
  Company Number: None

PATIENT
  Age: 50 Year
  Sex: Male

DRUGS (1)
  1. DYSPORT [Suspect]
     Active Substance: ABOBOTULINUMTOXINA
     Indication: TORTICOLLIS
     Dosage: 500 UNITS Q3MONTHS IM
     Route: 030
     Dates: start: 20170330, end: 20170725

REACTIONS (3)
  - Pain [None]
  - Therapy cessation [None]
  - Gait disturbance [None]

NARRATIVE: CASE EVENT DATE: 20170720
